FAERS Safety Report 4744247-3 (Version None)
Quarter: 2005Q3

REPORT INFORMATION
  Report Type: 
  Country: None (occurrence: None)
  Receive Date: 20050809
  Receipt Date: 20050727
  Transmission Date: 20060218
  Serious: Yes (Hospitalization)
  Sender: FDA-Public Use
  Company Number: 2005BI014386

PATIENT
  Age: 33 Year
  Sex: Female

DRUGS (1)
  1. AMEVIVE [Suspect]
     Indication: PSORIASIS
     Dosage: 15 MG, QW; IM
     Route: 030
     Dates: start: 20050329, end: 20050615

REACTIONS (2)
  - FOOT FRACTURE [None]
  - POST PROCEDURAL CELLULITIS [None]
